FAERS Safety Report 5170267-3 (Version None)
Quarter: 2006Q4

REPORT INFORMATION
  Report Type: 
  Country: None (occurrence: None)
  Receive Date: 20061212
  Receipt Date: 20061110
  Transmission Date: 20070319
  Serious: Yes (Hospitalization)
  Sender: FDA-Public Use
  Company Number: FR-BRISTOL-MYERS SQUIBB COMPANY-13576087

PATIENT
  Age: 24 Year
  Sex: Female
  Weight: 52 kg

DRUGS (1)
  1. QUESTRAN [Suspect]
     Indication: FATIGUE
     Route: 048
     Dates: start: 20061107, end: 20061108

REACTIONS (7)
  - DEHYDRATION [None]
  - DIARRHOEA [None]
  - HYPOTENSION [None]
  - LEUKOCYTOSIS [None]
  - PRESYNCOPE [None]
  - SYNCOPE [None]
  - VOMITING [None]
